FAERS Safety Report 6033895-9 (Version None)
Quarter: 2009Q1

REPORT INFORMATION
  Report Type: 
  Country: None (occurrence: None)
  Receive Date: 20090112
  Receipt Date: 20090106
  Transmission Date: 20090719
  Serious: Yes (Death)
  Sender: FDA-Public Use
  Company Number: US-AVENTIS-200812044GDDC

PATIENT
  Age: 71 Year
  Sex: Male
  Weight: 77.1 kg

DRUGS (12)
  1. DOCETAXEL [Suspect]
     Route: 042
     Dates: start: 20080227, end: 20080227
  2. OXALIPLATIN [Suspect]
     Route: 042
     Dates: start: 20080227, end: 20080227
  3. CAPECITABINE [Suspect]
     Route: 048
     Dates: start: 20080207, end: 20080229
  4. ATENOLOL [Concomitant]
     Indication: VENTRICULAR EXTRASYSTOLES
     Route: 048
     Dates: start: 19970101, end: 20080304
  5. GEMFIBROZIL [Concomitant]
     Route: 048
     Dates: start: 19970101, end: 20080304
  6. METAMUCIL                          /00091301/ [Concomitant]
     Dosage: DOSE: UNK
     Route: 048
     Dates: start: 19970101, end: 20080304
  7. CENTRUM SILVER                     /01292501/ [Concomitant]
     Dosage: DOSE QUANTITY: 1
     Route: 048
     Dates: start: 19970101, end: 20080304
  8. ASPIRIN [Concomitant]
     Indication: PROPHYLAXIS
     Route: 048
     Dates: start: 19970101, end: 20080304
  9. PRILOSEC [Concomitant]
     Route: 048
     Dates: start: 20071101, end: 20080304
  10. PHENERGAN HCL [Concomitant]
     Indication: NAUSEA
     Route: 048
     Dates: start: 20080208, end: 20080304
  11. ZOFRAN [Concomitant]
     Indication: NAUSEA
     Route: 048
     Dates: start: 20080208, end: 20080304
  12. HYDROCODONE [Concomitant]
     Indication: ABDOMINAL PAIN
     Dosage: DOSE: 5/325 MG
     Route: 048
     Dates: start: 20080204, end: 20080304

REACTIONS (1)
  - INTESTINAL PERFORATION [None]
